FAERS Safety Report 7476401-4 (Version None)
Quarter: 2011Q2

REPORT INFORMATION
  Report Type: 
  Country: None (occurrence: None)
  Receive Date: 20110512
  Receipt Date: 20110506
  Transmission Date: 20111010
  Serious: Yes (Life-Threatening, Hospitalization)
  Sender: FDA-Public Use
  Company Number: US-ASTRAZENECA-2011SE27342

PATIENT
  Sex: Male

DRUGS (1)
  1. SEROQUEL [Suspect]
     Route: 048

REACTIONS (10)
  - INCREASED UPPER AIRWAY SECRETION [None]
  - LACRIMATION INCREASED [None]
  - RESPIRATORY TRACT CONGESTION [None]
  - GASTROINTESTINAL HAEMORRHAGE [None]
  - LIVING IN RESIDENTIAL INSTITUTION [None]
  - GASTROINTESTINAL TUBE INSERTION [None]
  - TRACHEOSTOMY [None]
  - DYSPNOEA [None]
  - ENDOTRACHEAL INTUBATION [None]
  - BEDRIDDEN [None]
